FAERS Safety Report 24088170 (Version 1)
Quarter: 2024Q3

REPORT INFORMATION
  Report Type: Spontaneous
  Country: JP (occurrence: JP)
  Receive Date: 20240715
  Receipt Date: 20240715
  Transmission Date: 20241017
  Serious: Yes (Death, Other)
  Sender: ROCHE
  Company Number: JP-ROCHE-10000023909

PATIENT
  Age: 60 Year
  Sex: Male

DRUGS (1)
  1. RITUXAN [Suspect]
     Active Substance: RITUXIMAB
     Indication: Prophylaxis against transplant rejection
     Route: 042

REACTIONS (6)
  - Bacteraemia [Unknown]
  - Cytomegalovirus infection [Unknown]
  - Pneumonia [Fatal]
  - Pneumatosis [Unknown]
  - Septic shock [Unknown]
  - Gastrointestinal necrosis [Fatal]
